FAERS Safety Report 19765506 (Version 1)
Quarter: 2021Q3

REPORT INFORMATION
  Report Type: Spontaneous
  Country: US (occurrence: US)
  Receive Date: 20210830
  Receipt Date: 20210830
  Transmission Date: 20211014
  Serious: Yes (Death)
  Sender: FDA-Public Use
  Company Number: US-PFIZER INC-2015350819

PATIENT
  Age: 68 Year
  Sex: Male
  Weight: 53.98 kg

DRUGS (35)
  1. TYLENOL [Concomitant]
     Active Substance: ACETAMINOPHEN
     Dosage: UNK
  2. LIDODERM [Concomitant]
     Active Substance: LIDOCAINE
     Dosage: UNK
  3. ZOFRAN [Concomitant]
     Active Substance: ONDANSETRON HYDROCHLORIDE
     Indication: NAUSEA
     Dosage: 4 MG, AS NEEDED (EVERY 8 HOURS)
     Route: 060
  4. LOPRESSOR [Concomitant]
     Active Substance: METOPROLOL TARTRATE
     Dosage: 50 MG, 2X/DAY
     Route: 048
  5. COUMADIN [Concomitant]
     Active Substance: WARFARIN SODIUM
     Dosage: UNK
  6. AMBIEN [Concomitant]
     Active Substance: ZOLPIDEM TARTRATE
     Indication: SLEEP DISORDER
     Dosage: 5 MG, AS NEEDED (AT BEDTIME)
     Route: 048
  7. PHENERGAN [Concomitant]
     Active Substance: PROMETHAZINE HYDROCHLORIDE
     Indication: NAUSEA
     Dosage: 25 MG, AS NEEDED (EVERY 6 HOURS)
     Route: 054
  8. VFEND [Suspect]
     Active Substance: VORICONAZOLE
     Indication: FUNGAL INFECTION
     Dosage: 200 MG, DAILY
     Route: 048
  9. MARINOL [Concomitant]
     Active Substance: DRONABINOL
     Dosage: UNK
  10. IRON [Concomitant]
     Active Substance: IRON
     Dosage: UNK
  11. RITALIN [Concomitant]
     Active Substance: METHYLPHENIDATE HYDROCHLORIDE
     Dosage: UNK
  12. LOPRESSOR [Concomitant]
     Active Substance: METOPROLOL TARTRATE
     Dosage: 25 MG, AS NEEDED (50 MG TABLET; 1/2 TABLET DAILY)
     Route: 048
  13. DURAGESIC [Concomitant]
     Active Substance: FENTANYL
     Dosage: UNK, [(12 (12.5) MCG/HR, 1 PATCH EVERY 3 DAYS), 1 PATCH EVERY 72 HOURS]
     Route: 061
  14. PROAIR HFA [Concomitant]
     Active Substance: ALBUTEROL SULFATE
     Indication: DYSPNOEA
     Dosage: UNK, AS NEEDED (EVERY 6 HOURS)
     Route: 055
  15. PROTONIX [Concomitant]
     Active Substance: PANTOPRAZOLE SODIUM
     Dosage: 40 MG, 1X/DAY
     Route: 048
  16. GAVISCON REGULAR STRENGTH [Concomitant]
     Active Substance: ALUMINUM HYDROXIDE\MAGNESIUM TRISILICATE
     Dosage: UNK, AS NEEDED (ALUMINIUM HYDROXIDE GEL 30 MG, MAGNESIUM TRISILICATE 14.2 MG)
  17. FIBERSOURCE [Concomitant]
     Dosage: UNK
  18. OXYGEN. [Concomitant]
     Active Substance: OXYGEN
     Dosage: UNK, (USE 2 L/MIN AS DIRECTED CONTINUOUS)
  19. MIRALAX [Concomitant]
     Active Substance: POLYETHYLENE GLYCOL 3350
     Dosage: UNK, 2X/DAY (TAKE 1 PACKET)
     Route: 048
  20. ZOFRAN [Concomitant]
     Active Substance: ONDANSETRON HYDROCHLORIDE
     Indication: VOMITING
     Dosage: 4 MG, AS NEEDED (EVERY 6 HOURS)
     Route: 060
  21. ZOLOFT [Concomitant]
     Active Substance: SERTRALINE HYDROCHLORIDE
     Dosage: UNK
  22. ATARAX [Concomitant]
     Active Substance: HYDROXYZINE HYDROCHLORIDE
     Dosage: UNK
  23. OXYCODONE HYDROCHLORIDE. [Concomitant]
     Active Substance: OXYCODONE HYDROCHLORIDE
     Indication: PAIN
     Dosage: 10 MG, AS NEEDED (EVERY 6 HOURS)
     Route: 048
  24. HYCODAN /01224801/ [Concomitant]
     Indication: COUGH
     Dosage: 5 ML, AS NEEDED, (HYDROCODONE BITARTRATE 5 MG, HOMATROPINE METHYLBROMIDE 1.5 MG, EVERY 6 HOURS)
     Route: 048
  25. LASIX [Concomitant]
     Active Substance: FUROSEMIDE
     Indication: OEDEMA
     Dosage: 40 MG, AS NEEDED (2 TIMES A DAY)
     Route: 048
  26. NEURONTIN [Concomitant]
     Active Substance: GABAPENTIN
     Dosage: UNK
  27. MAALOX ANTACID [Concomitant]
     Active Substance: ALUMINUM HYDROXIDE\DIMETHICONE\MAGNESIUM HYDROXIDE
     Dosage: UNK
  28. LIPITOR [Concomitant]
     Active Substance: ATORVASTATIN CALCIUM
     Dosage: UNK
  29. PROVENTIL [Concomitant]
     Active Substance: ALBUTEROL
     Dosage: UNK, 4X/DAY (2.5 MG/3ML)
  30. BUSPAR [Concomitant]
     Active Substance: BUSPIRONE HYDROCHLORIDE
     Dosage: UNK
  31. ASPIRIN /00002701/ [Concomitant]
     Active Substance: ASPIRIN
     Dosage: 81 MG, DAILY
     Route: 048
  32. POTASSIUM CHLORIDE. [Concomitant]
     Active Substance: POTASSIUM CHLORIDE
     Dosage: 20 MEQ, DAILY
     Route: 048
  33. SENOKOT [Concomitant]
     Active Substance: SENNOSIDES
     Dosage: UNK
  34. GUAIFENESIN/CODEINE [Concomitant]
     Active Substance: CODEINE PHOSPHATE\GUAIFENESIN
     Dosage: UNK
  35. PULMOCARE /00510701/ [Concomitant]
     Dosage: UNK, 4X/DAY, (4 CANS INTO PEG TUBE AT NIGHT)

REACTIONS (2)
  - Incorrect route of product administration [Unknown]
  - Death [Fatal]
